FAERS Safety Report 6779803-4 (Version None)
Quarter: 2010Q2

REPORT INFORMATION
  Report Type: 
  Country: None (occurrence: None)
  Receive Date: 20100618
  Receipt Date: 20100607
  Transmission Date: 20101027
  Serious: Yes (Other)
  Sender: FDA-Public Use
  Company Number: US-PFIZER INC-2010069236

PATIENT
  Sex: Female
  Weight: 65.77 kg

DRUGS (8)
  1. TOVIAZ [Suspect]
     Indication: INCONTINENCE
     Dosage: 4 MG, 1X/DAY
     Route: 048
     Dates: start: 20100526, end: 20100528
  2. AMLODIPINE [Concomitant]
     Indication: HYPERTENSION
     Dosage: UNK
  3. COZAAR [Concomitant]
     Indication: HYPERTENSION
     Dosage: UNK
  4. REFRESH PLUS [Concomitant]
     Indication: DRY EYE
     Dosage: UNK
     Route: 047
  5. TEARS NATURALE [Concomitant]
     Indication: DRY EYE
     Dosage: UNK
  6. CYCLOSPORINE [Concomitant]
     Indication: DRY EYE
     Dosage: UNK
  7. FLOVENT [Concomitant]
     Indication: ASTHMA
     Dosage: UNK
  8. SEREVENT [Concomitant]
     Indication: ASTHMA
     Dosage: UNK

REACTIONS (6)
  - COUGH [None]
  - DIZZINESS [None]
  - DRY MOUTH [None]
  - DRY THROAT [None]
  - MIGRAINE [None]
  - SOMNOLENCE [None]
